FAERS Safety Report 4832727-1 (Version None)
Quarter: 2005Q4

REPORT INFORMATION
  Report Type: 
  Country: None (occurrence: None)
  Receive Date: 20051117
  Receipt Date: 20051117
  Transmission Date: 20060501
  Serious: Yes (Hospitalization)
  Sender: FDA-Public Use
  Company Number: None

PATIENT
  Sex: Male
  Weight: 98.8842 kg

DRUGS (2)
  1. GEMCITABINE [Suspect]
     Indication: PROSTATE CANCER
     Dosage: 700 MG./M2    D-1, D-8 EVERY 21D   IV
     Route: 042
     Dates: start: 20050817, end: 20051027
  2. TAXOTERE [Suspect]
     Indication: PROSTATE CANCER
     Dosage: 70 MG./M2    EVERY 21 DAYS   IV
     Route: 042
     Dates: start: 20050817, end: 20051020

REACTIONS (6)
  - DIARRHOEA [None]
  - EPISTAXIS [None]
  - GASTROINTESTINAL HAEMORRHAGE [None]
  - HAEMATURIA [None]
  - NAUSEA [None]
  - PANCYTOPENIA [None]
